FAERS Safety Report 4611634-3 (Version None)
Quarter: 2005Q1

REPORT INFORMATION
  Report Type: 
  Country: None (occurrence: None)
  Receive Date: 20050317
  Receipt Date: 20050307
  Transmission Date: 20050727
  Serious: Yes (Hospitalization)
  Sender: FDA-Public Use
  Company Number: US-ROCHE-397940

PATIENT
  Age: 89 Year
  Sex: Male
  Weight: 50.4 kg

DRUGS (8)
  1. VESANOID [Suspect]
     Indication: ACUTE PROMYELOCYTIC LEUKAEMIA
     Dosage: 40MG IN THE MORNING. 30MG IN THE EVENING.
     Route: 048
  2. LESCOL [Concomitant]
  3. NORVASC [Concomitant]
  4. ALLOPURINOL [Concomitant]
  5. COZAAR [Concomitant]
  6. ASPIRIN [Concomitant]
  7. GLUCOSAMINE [Concomitant]
  8. TYLENOL (CAPLET) [Concomitant]

REACTIONS (3)
  - ANAEMIA [None]
  - INFECTION [None]
  - RENAL FAILURE ACUTE [None]
